FAERS Safety Report 9659242 (Version 1)
Quarter: 2013Q4

REPORT INFORMATION
  Report Type: Spontaneous
  Country: CH (occurrence: CH)
  Receive Date: 20131031
  Receipt Date: 20131031
  Transmission Date: 20140711
  Serious: Yes (Hospitalization, Other)
  Sender: FDA-Public Use
  Company Number: CH-BRISTOL-MYERS SQUIBB COMPANY-19426808

PATIENT
  Age: 26 Year
  Sex: Female
  Weight: 66 kg

DRUGS (5)
  1. LYSODREN [Suspect]
     Indication: ADRENOCORTICAL CARCINOMA
     Dosage: 4.5GM-OCT12;?3GM-NOV12, 08DEC12, 27NOV12, 01AUG13;?2GM-05AUG-07AUG13
     Route: 065
     Dates: start: 201209, end: 20130807
  2. FRAXIFORTE [Concomitant]
  3. SAROTEN [Concomitant]
  4. HYDROCORTISONE [Concomitant]
     Dosage: 20MG, 10MG
  5. ESOMEPRAZOLE [Concomitant]

REACTIONS (4)
  - Migraine [Recovered/Resolved]
  - Nausea [Recovered/Resolved]
  - Vomiting [Recovered/Resolved]
  - Flank pain [Recovered/Resolved]
